FAERS Safety Report 25147574 (Version 1)
Quarter: 2025Q2

REPORT INFORMATION
  Report Type: Report from Study
  Country: ES (occurrence: ES)
  Receive Date: 20250402
  Receipt Date: 20250402
  Transmission Date: 20250716
  Serious: Yes (Other)
  Sender: SANOFI AVENTIS
  Company Number: ES-SA-2024SA344205

PATIENT

DRUGS (6)
  1. ISATUXIMAB [Suspect]
     Active Substance: ISATUXIMAB
     Indication: Plasma cell myeloma refractory
     Dosage: 10 MG/KG, QW (DAYS 1, 8, 15, AND 22)
     Route: 042
     Dates: start: 202205, end: 202405
  2. ISATUXIMAB [Suspect]
     Active Substance: ISATUXIMAB
     Dosage: 10 MG/KG, QOW (DAYS 1 AND 15 OF EACH CYCLE, EVERY 28 DAYS)
     Route: 042
     Dates: start: 202205, end: 202405
  3. DEXAMETHASONE [Suspect]
     Active Substance: DEXAMETHASONE
     Indication: Plasma cell myeloma refractory
     Route: 048
     Dates: start: 202205, end: 202405
  4. CARFILZOMIB [Suspect]
     Active Substance: CARFILZOMIB
     Indication: Plasma cell myeloma refractory
     Route: 042
     Dates: start: 202205, end: 202405
  5. CARFILZOMIB [Suspect]
     Active Substance: CARFILZOMIB
     Dosage: 70 MG/M2, QW (ON DAYS 1, 8 AND 15)
     Route: 042
     Dates: start: 202205, end: 202405
  6. ACYCLOVIR [Concomitant]
     Active Substance: ACYCLOVIR
     Indication: Prophylaxis
     Dates: start: 202205

REACTIONS (2)
  - Meningococcal bacteraemia [Unknown]
  - Morganella infection [Unknown]

NARRATIVE: CASE EVENT DATE: 20220101
